FAERS Safety Report 12552032 (Version 3)
Quarter: 2016Q4

REPORT INFORMATION
  Report Type: Report from Study
  Country: US (occurrence: US)
  Receive Date: 20160713
  Receipt Date: 20161020
  Transmission Date: 20170207
  Serious: Yes (Death, Hospitalization)
  Sender: FDA-Public Use
  Company Number: PHEH2016US017246

PATIENT
  Age: 52 Year
  Sex: Female
  Weight: 120.18 kg

DRUGS (2)
  1. AFINITOR [Suspect]
     Active Substance: EVEROLIMUS
     Indication: BREAST CANCER METASTATIC
     Dosage: 10 MG, QD
     Route: 048
     Dates: start: 20160513
  2. AFINITOR [Suspect]
     Active Substance: EVEROLIMUS
     Indication: BREAST CANCER

REACTIONS (3)
  - Hypokalaemia [Recovered/Resolved]
  - Body mass index increased [Unknown]
  - Death [Fatal]

NARRATIVE: CASE EVENT DATE: 20160708
